FAERS Safety Report 6769521-0 (Version None)
Quarter: 2010Q2

REPORT INFORMATION
  Report Type: 
  Country: None (occurrence: None)
  Receive Date: 20100608
  Receipt Date: 20100602
  Transmission Date: 20101027
  Serious: Yes (Other)
  Sender: FDA-Public Use
  Company Number: 2010SP031399

PATIENT
  Sex: Male

DRUGS (7)
  1. CELESTAMINE TAB [Suspect]
     Indication: DRUG ERUPTION
     Dosage: PO
  2. POLARAMINE [Concomitant]
     Indication: DRUG ERUPTION
     Dosage: PO
     Route: 048
  3. POLARAMINE [Concomitant]
     Indication: URTICARIA
     Dosage: PO
     Route: 048
  4. PREDNISOLONE [Suspect]
     Indication: DRUG ERUPTION
  5. PREDNISOLONE [Suspect]
     Indication: URTICARIA
  6. PRIDOL (METHYLPREDNISOLONE SODIUM SUCCINATE / 00049602/) [Suspect]
     Indication: DRUG ERUPTION
  7. PRIDOL (METHYLPREDNISOLONE SODIUM SUCCINATE / 00049602/) [Suspect]
     Indication: URTICARIA

REACTIONS (2)
  - INTRAOCULAR PRESSURE INCREASED [None]
  - OPTIC NERVE INJURY [None]
